FAERS Safety Report 13387111 (Version 1)
Quarter: 2017Q1

REPORT INFORMATION
  Report Type: Spontaneous
  Country: US (occurrence: US)
  Receive Date: 20170330
  Receipt Date: 20170330
  Transmission Date: 20170429
  Serious: No
  Sender: FDA-Public Use
  Company Number: US-PERRIGO-16US021021

PATIENT
  Age: 82 Year
  Sex: Female
  Weight: 47.62 kg

DRUGS (4)
  1. MULTIVITAMINS, PLAIN [Concomitant]
     Active Substance: VITAMINS
     Indication: SUPPLEMENTATION THERAPY
     Dosage: UNK
     Route: 048
     Dates: start: 201610
  2. DICLOFENAC [Concomitant]
     Active Substance: DICLOFENAC
     Indication: CATARACT OPERATION
     Dosage: UNK
     Route: 065
     Dates: start: 201610
  3. CICLOPIROX. [Suspect]
     Active Substance: CICLOPIROX
     Indication: FUNGAL INFECTION
     Dosage: APPROXIMATELY 1 TSP, QD
     Route: 061
     Dates: start: 20161014
  4. PREDNISOLONE ACETATE. [Concomitant]
     Active Substance: PREDNISOLONE ACETATE
     Indication: CATARACT OPERATION
     Dosage: UNK
     Route: 065
     Dates: start: 201610

REACTIONS (1)
  - Inappropriate schedule of drug administration [Unknown]

NARRATIVE: CASE EVENT DATE: 20161014
